FAERS Safety Report 7089304-4 (Version None)
Quarter: 2010Q4

REPORT INFORMATION
  Report Type: 
  Country: None (occurrence: None)
  Receive Date: 20101108
  Receipt Date: 20101025
  Transmission Date: 20110411
  Serious: Yes (Hospitalization)
  Sender: FDA-Public Use
  Company Number: JP-ABBOTT-09P-087-0600997-00

PATIENT
  Age: 76 Year
  Sex: Male

DRUGS (10)
  1. LEUPROLIDE ACETATE [Suspect]
     Indication: PROSTATE CANCER STAGE III
     Route: 058
     Dates: start: 20080704
  2. BICALUTAMIDE [Concomitant]
     Indication: PROSTATE CANCER STAGE III
     Route: 048
     Dates: end: 20090205
  3. CORINAEL [Concomitant]
     Indication: HYPERTENSION
     Route: 048
     Dates: start: 20040101
  4. NICHISTATE [Concomitant]
     Indication: CEREBRAL INFARCTION
     Route: 048
     Dates: start: 20020101
  5. SALUMOSIN [Concomitant]
     Indication: CEREBRAL INFARCTION
     Route: 048
     Dates: start: 20020101
  6. RUEFRIEN [Concomitant]
     Indication: GASTRIC ULCER
     Route: 048
     Dates: start: 20020101
  7. ALLOPURINOL [Concomitant]
     Indication: GOUT
     Route: 048
     Dates: start: 20020101
  8. SOLDEM 3A [Concomitant]
     Indication: MEDICAL DIET
     Route: 042
     Dates: start: 20090502, end: 20090507
  9. PENTAZOCINE LACTATE [Concomitant]
     Indication: ANALGESIC THERAPY
     Route: 042
     Dates: start: 20090502, end: 20090503
  10. OPYSTAN [Concomitant]
     Indication: ANALGESIC THERAPY
     Route: 042
     Dates: start: 20090502, end: 20090502

REACTIONS (3)
  - HYPOCALCAEMIA [None]
  - INSOMNIA [None]
  - PANCREATITIS ACUTE [None]
